FAERS Safety Report 15762473 (Version 1)
Quarter: 2018Q4

REPORT INFORMATION
  Report Type: Spontaneous
  Country: FR (occurrence: FR)
  Receive Date: 20181226
  Receipt Date: 20181226
  Transmission Date: 20190205
  Serious: Yes (Hospitalization)
  Sender: FDA-Public Use
  Company Number: FR-PFIZER INC-2018519747

PATIENT
  Age: 45 Year
  Sex: Female

DRUGS (3)
  1. IMODIUM [Suspect]
     Active Substance: LOPERAMIDE HYDROCHLORIDE
     Dosage: 10 DF, 1X/DAY
     Route: 048
     Dates: start: 20181019, end: 20181019
  2. ADVIL [Suspect]
     Active Substance: IBUPROFEN
     Dosage: 1600 MG, 1X/DAY
     Route: 048
     Dates: start: 20181019, end: 20181019
  3. IBUPROFEN. [Suspect]
     Active Substance: IBUPROFEN
     Dosage: 4000 MG, 1X/DAY
     Route: 048
     Dates: start: 20181019, end: 20181019

REACTIONS (2)
  - Overdose [Recovered/Resolved]
  - Somnolence [Recovered/Resolved]

NARRATIVE: CASE EVENT DATE: 20181019
